FAERS Safety Report 7336084-0 (Version None)
Quarter: 2011Q1

REPORT INFORMATION
  Report Type: 
  Country: None (occurrence: None)
  Receive Date: 20110307
  Receipt Date: 20110302
  Transmission Date: 20110831
  Serious: Yes (Hospitalization)
  Sender: FDA-Public Use
  Company Number: LB-ABBOTT-11P-093-0708499-00

PATIENT
  Age: 63 Year
  Sex: Female

DRUGS (12)
  1. GLUCOPHAGE [Concomitant]
     Indication: PRODUCT USED FOR UNKNOWN INDICATION
  2. DECALCIT [Concomitant]
     Indication: PRODUCT USED FOR UNKNOWN INDICATION
  3. FOLIC ACID [Concomitant]
     Indication: PRODUCT USED FOR UNKNOWN INDICATION
  4. LIPONORM [Concomitant]
     Indication: PRODUCT USED FOR UNKNOWN INDICATION
  5. CORTISONE [Concomitant]
     Indication: PRODUCT USED FOR UNKNOWN INDICATION
  6. CIPRALEX [Concomitant]
     Indication: PRODUCT USED FOR UNKNOWN INDICATION
  7. HUMIRA [Suspect]
     Indication: CROHN'S DISEASE
     Dosage: DOSE DECREASED
     Route: 058
     Dates: start: 20090901, end: 20101103
  8. TRYPTISOL [Concomitant]
     Indication: PRODUCT USED FOR UNKNOWN INDICATION
  9. MARVIL [Concomitant]
     Indication: PRODUCT USED FOR UNKNOWN INDICATION
  10. CONCOR [Concomitant]
     Indication: PRODUCT USED FOR UNKNOWN INDICATION
  11. HUMIRA [Suspect]
     Route: 058
     Dates: start: 20101103, end: 20110202
  12. AMARIL [Concomitant]
     Indication: PRODUCT USED FOR UNKNOWN INDICATION

REACTIONS (4)
  - ERYTHEMA [None]
  - PRURITUS [None]
  - PALLOR [None]
  - SKIN BURNING SENSATION [None]
